FAERS Safety Report 19935122 (Version 2)
Quarter: 2021Q4

REPORT INFORMATION
  Report Type: Spontaneous
  Country: US (occurrence: US)
  Receive Date: 20211008
  Receipt Date: 20211229
  Transmission Date: 20220303
  Serious: No
  Sender: FDA-Public Use
  Company Number: US-SA-SAC20211001000105

PATIENT
  Age: 72 Year
  Sex: Male

DRUGS (1)
  1. DUPIXENT [Suspect]
     Active Substance: DUPILUMAB
     Dosage: 300 MG, PRN
     Route: 058
     Dates: start: 20210601

REACTIONS (5)
  - Condition aggravated [Recovering/Resolving]
  - Acne [Unknown]
  - Pruritus [Recovering/Resolving]
  - Rash macular [Unknown]
  - Product use issue [Unknown]

NARRATIVE: CASE EVENT DATE: 20210601
